FAERS Safety Report 8648138 (Version 6)
Quarter: 2012Q4

REPORT INFORMATION
  Report Type: 
  Country: US (occurrence: US)
  Receive Date: 20120703
  Receipt Date: 20121127
  Transmission Date: 20130627
  Serious: Yes (Life-Threatening, Hospitalization, Other)
  Sender: FDA-Public Use
  Company Number: PHEH2012US012836

PATIENT
  Age: 51 Year
  Sex: Female
  Weight: 77.98 kg

DRUGS (18)
  1. GILENYA [Suspect]
     Indication: MULTIPLE SCLEROSIS
     Dosage: 0.5 mg, QD
     Route: 048
     Dates: start: 20110808, end: 20120618
  2. PROZAC [Concomitant]
     Dosage: 20 mg, UNK
     Route: 048
  3. TOPAMAX [Concomitant]
     Dosage: 100 mg four times daily
     Route: 048
  4. ARMOUR THYROID [Concomitant]
     Dosage: 90 mg, QD
     Route: 048
     Dates: start: 20111118
  5. GABAPENTIN [Concomitant]
     Dosage: 300 mg, QHS
     Route: 048
     Dates: start: 20111118
  6. ADDERALL [Concomitant]
     Dosage: 4 DF, QD (2 tablet in morning and 2 at noon)
     Route: 048
  7. PROVIGIL [Concomitant]
     Dosage: 200 mg, QD
     Route: 048
  8. SYNTHROID [Concomitant]
     Dosage: UNK UKN, UNK
  9. ALBUTEROL [Concomitant]
     Dosage: UNK UKN, PRN
  10. VALIUM [Concomitant]
     Indication: MUSCLE SPASMS
     Dosage: 2 DF, Q12H
     Route: 048
  11. ATROVENT [Concomitant]
     Dosage: UNK UKN, UNK
  12. LASIX [Concomitant]
     Indication: OEDEMA
     Dosage: 1 DF, QD
     Route: 048
     Dates: start: 20111118
  13. TRAZODONE [Concomitant]
     Dosage: 150 mg, QHS
     Route: 048
  14. AMANTADINE [Concomitant]
     Dosage: 100 mg, QD
     Route: 048
  15. KEPPRA [Concomitant]
     Dosage: UNK UKN, UNK
  16. KLONOPIN [Concomitant]
     Dosage: 0.5 mg two TAB at bedtime
     Dates: start: 20111118
  17. THYROXINE [Concomitant]
     Dosage: 1 DF, UNK
  18. BYETTA [Concomitant]
     Indication: DIABETES MELLITUS
     Dosage: 5 ug, BID
     Route: 030
     Dates: start: 20111118

REACTIONS (79)
  - Coma [Unknown]
  - Posterior reversible encephalopathy syndrome [Recovering/Resolving]
  - Headache [Recovering/Resolving]
  - Speech disorder [Unknown]
  - Convulsion [Unknown]
  - Confusional state [Unknown]
  - Visual impairment [Unknown]
  - Cognitive disorder [Unknown]
  - Mental status changes [Unknown]
  - Clumsiness [Unknown]
  - Brain oedema [Unknown]
  - Somnolence [Unknown]
  - Petechiae [Unknown]
  - Electroencephalogram abnormal [Unknown]
  - Asthenia [Unknown]
  - Labile hypertension [Unknown]
  - CSF volume increased [Recovering/Resolving]
  - Blindness [Not Recovered/Not Resolved]
  - Brain injury [Unknown]
  - Fall [Unknown]
  - Central nervous system lesion [Unknown]
  - Paralysis [Unknown]
  - Bronchial hyperreactivity [Unknown]
  - Blood albumin decreased [Unknown]
  - Very low density lipoprotein decreased [Unknown]
  - Blood thyroid stimulating hormone decreased [Unknown]
  - Creatinine renal clearance decreased [Unknown]
  - Aura [Unknown]
  - Tremor [Unknown]
  - Muscle twitching [Unknown]
  - Paraesthesia oral [Unknown]
  - Muscle spasms [Unknown]
  - Diplopia [Unknown]
  - Fatigue [Unknown]
  - Bowel movement irregularity [Unknown]
  - Stress [Unknown]
  - Poor quality sleep [Unknown]
  - Pyrexia [Unknown]
  - Dyskinesia [Unknown]
  - Coordination abnormal [Unknown]
  - Dry eye [Unknown]
  - Neck pain [Unknown]
  - Nausea [Unknown]
  - Micturition urgency [Unknown]
  - Contusion [Unknown]
  - Haemorrhage [Unknown]
  - Anxiety [Unknown]
  - Memory impairment [Unknown]
  - Obsessive thoughts [Unknown]
  - Intervertebral disc protrusion [Unknown]
  - Myoclonus [Unknown]
  - Euphoric mood [Unknown]
  - Dysphonia [Unknown]
  - Oropharyngeal pain [Unknown]
  - Arthralgia [Unknown]
  - Sleep disorder [Unknown]
  - Polydipsia [Unknown]
  - Head titubation [Unknown]
  - Dysgeusia [Unknown]
  - Oedema peripheral [Unknown]
  - Pain in extremity [Unknown]
  - Hypoaesthesia [Unknown]
  - Paraesthesia [Unknown]
  - Disturbance in attention [Unknown]
  - Balance disorder [Unknown]
  - Muscle tightness [Unknown]
  - Photophobia [Unknown]
  - Epistaxis [Unknown]
  - Joint stiffness [Unknown]
  - Vertigo [Unknown]
  - Migraine [Unknown]
  - Urinary tract infection [Unknown]
  - Dysuria [Unknown]
  - Dyspnoea [Unknown]
  - Depression [Unknown]
  - Diarrhoea [Unknown]
  - Dizziness [Unknown]
  - Back pain [Unknown]
  - Vision blurred [Unknown]
